FAERS Safety Report 20086056 (Version 2)
Quarter: 2022Q1

REPORT INFORMATION
  Report Type: Spontaneous
  Country: US (occurrence: US)
  Receive Date: 20211118
  Receipt Date: 20220114
  Transmission Date: 20220423
  Serious: Yes (Other)
  Sender: FDA-Public Use
  Company Number: US-PFIZER INC-202101528870

PATIENT
  Age: 59 Year
  Sex: Male

DRUGS (1)
  1. XELJANZ XR [Suspect]
     Active Substance: TOFACITINIB CITRATE
     Indication: Colitis ulcerative
     Dosage: 22 MG, 1X/DAY (22MG BY MOUTH DAILY)
     Route: 048
     Dates: start: 20210916, end: 202110

REACTIONS (7)
  - Rectal haemorrhage [Unknown]
  - Condition aggravated [Unknown]
  - Drug ineffective [Unknown]
  - Off label use [Unknown]
  - Condition aggravated [Unknown]
  - Discouragement [Unknown]
  - Depressed mood [Unknown]

NARRATIVE: CASE EVENT DATE: 20210101
